FAERS Safety Report 9130382 (Version 1)
Quarter: 2013Q1

REPORT INFORMATION
  Report Type: Spontaneous
  Country: US (occurrence: US)
  Receive Date: 20130228
  Receipt Date: 20130228
  Transmission Date: 20140127
  Serious: No
  Sender: FDA-Public Use
  Company Number: US-PFIZER INC-2013068220

PATIENT
  Age: 52 Year
  Sex: Female
  Weight: 62.59 kg

DRUGS (2)
  1. CHANTIX [Suspect]
     Indication: SMOKING CESSATION THERAPY
     Dosage: 0.5 MG, 1X/DAY
     Route: 048
     Dates: start: 20130216, end: 201302
  2. CHANTIX [Suspect]
     Dosage: 0.5 MG, 2X/DAY
     Route: 048
     Dates: start: 201302, end: 20130221

REACTIONS (3)
  - Erythema [Not Recovered/Not Resolved]
  - Dry skin [Recovering/Resolving]
  - Burning sensation [Recovering/Resolving]
